FAERS Safety Report 9349889 (Version 3)
Quarter: 2014Q2

REPORT INFORMATION
  Report Type: Report from Study
  Country: US (occurrence: US)
  Receive Date: 20130614
  Receipt Date: 20140612
  Transmission Date: 20141212
  Serious: Yes (Hospitalization)
  Sender: FDA-Public Use
  Company Number: PHHO2013US007647

PATIENT
  Age: 39 Year
  Sex: Male
  Weight: 57.32 kg

DRUGS (7)
  1. LJM716 [Suspect]
     Indication: SQUAMOUS CELL CARCINOMA
     Dosage: 40 MG/KG, QW
     Dates: start: 20130415, end: 20130528
  2. LEVOFLOXACIN [Suspect]
     Dosage: 750 MG, QD
  3. ACYCLOVIR [Concomitant]
     Dosage: 200 MG, 5 PER DAY
  4. ALLEGRA [Concomitant]
     Dosage: 180 MG, QD
  5. FLONASE [Concomitant]
     Dosage: 2 DF, QD
  6. OMEPRAZOLE [Concomitant]
     Dosage: 20 MG, QD
  7. GUAIFENESIN [Concomitant]
     Dosage: 5 ML, Q6H

REACTIONS (2)
  - Pneumatosis intestinalis [Recovered/Resolved]
  - Pneumonia [Recovered/Resolved]
